FAERS Safety Report 13604615 (Version 1)
Quarter: 2017Q2

REPORT INFORMATION
  Report Type: Spontaneous
  Country: US (occurrence: US)
  Receive Date: 20170601
  Receipt Date: 20170601
  Transmission Date: 20170830
  Serious: Yes (Hospitalization)
  Sender: FDA-Public Use
  Company Number: None

PATIENT
  Age: 77 Year
  Sex: Male
  Weight: 135.68 kg

DRUGS (1)
  1. RIVAROXABAN [Suspect]
     Active Substance: RIVAROXABAN
     Indication: ATRIAL FIBRILLATION
     Route: 048
     Dates: start: 20150218

REACTIONS (6)
  - Confusional state [None]
  - Anaemia [None]
  - Gastrointestinal haemorrhage [None]
  - Polyp [None]
  - Dyspnoea [None]
  - Diverticulum [None]

NARRATIVE: CASE EVENT DATE: 20170507
